FAERS Safety Report 6896721-1 (Version None)
Quarter: 2010Q3

REPORT INFORMATION
  Report Type: 
  Country: None (occurrence: None)
  Receive Date: 20100802
  Receipt Date: 20070202
  Transmission Date: 20110219
  Serious: Yes (Other)
  Sender: FDA-Public Use
  Company Number: US-PFIZER INC-2006153626

PATIENT
  Age: 39 Year
  Sex: Female

DRUGS (5)
  1. LYRICA [Suspect]
     Indication: NEUROPATHY PERIPHERAL
     Dates: start: 20060801, end: 20061201
  2. LYRICA [Suspect]
     Indication: LUMBAR RADICULOPATHY
  3. MULTI-VITAMINS [Concomitant]
  4. CELEBREX [Concomitant]
  5. TYLENOL [Concomitant]

REACTIONS (2)
  - DIZZINESS [None]
  - DRUG WITHDRAWAL SYNDROME [None]
